FAERS Safety Report 7957237-4 (Version None)
Quarter: 2011Q4

REPORT INFORMATION
  Report Type: 
  Country: None (occurrence: None)
  Receive Date: 20111201
  Receipt Date: 20111122
  Transmission Date: 20120403
  Serious: Yes (Hospitalization)
  Sender: FDA-Public Use
  Company Number: GER/UKI/11/0022071

PATIENT
  Age: 60 Year
  Sex: Female

DRUGS (8)
  1. EPINEPHRINE [Concomitant]
  2. METRONIDAZOLE [Concomitant]
  3. CHLORPHENIRAMINE MALEATE [Concomitant]
  4. STEROIDS (STEROID ANTIBACTERIALS) [Concomitant]
  5. FESOTERODINE (FESOTERODINE) [Concomitant]
  6. OMEPRAZOLE [Suspect]
     Indication: PRODUCT USED FOR UNKNOWN INDICATION
     Dosage: 20 MG, 1 IN 1 D, ORAL
     Route: 048
     Dates: start: 20110817
  7. RAMIPRIL [Suspect]
     Indication: HYPERTENSION
     Dosage: 2.5 MG, 1 IN 1 D, ORAL
     Route: 048
     Dates: start: 20110801
  8. AMOXICILLIN [Concomitant]

REACTIONS (6)
  - MUSCULAR WEAKNESS [None]
  - PAIN [None]
  - BLOOD CREATINE PHOSPHOKINASE INCREASED [None]
  - MYALGIA [None]
  - RHABDOMYOLYSIS [None]
  - ASTHENIA [None]
